FAERS Safety Report 15218820 (Version 3)
Quarter: 2018Q3

REPORT INFORMATION
  Report Type: Report from Study
  Country: None (occurrence: US)
  Receive Date: 20180731
  Receipt Date: 20180925
  Transmission Date: 20181010
  Serious: Yes (Hospitalization)
  Sender: FDA-Public Use
  Company Number: US-ABBVIE-18K-163-2383793-00

PATIENT
  Age: 63 Year
  Sex: Female

DRUGS (3)
  1. HUMIRA [Suspect]
     Active Substance: ADALIMUMAB
     Indication: CROHN^S DISEASE
     Dosage: DAY 1
     Route: 058
     Dates: start: 20180604, end: 20180604
  2. HUMIRA [Suspect]
     Active Substance: ADALIMUMAB
     Dosage: DAY 15
     Route: 058
     Dates: start: 20180619, end: 20180619
  3. HUMIRA [Suspect]
     Active Substance: ADALIMUMAB
     Route: 058
     Dates: start: 201806

REACTIONS (22)
  - Anxiety [Not Recovered/Not Resolved]
  - Intestinal obstruction [Unknown]
  - Gastrointestinal sounds abnormal [Not Recovered/Not Resolved]
  - Nausea [Not Recovered/Not Resolved]
  - Chills [Unknown]
  - Hyperhidrosis [Unknown]
  - Abnormal faeces [Unknown]
  - Peripheral swelling [Recovered/Resolved]
  - Headache [Recovering/Resolving]
  - Panic attack [Unknown]
  - Gastrointestinal inflammation [Unknown]
  - Dehydration [Unknown]
  - Gingivitis [Recovering/Resolving]
  - Depressed mood [Not Recovered/Not Resolved]
  - Nasopharyngitis [Unknown]
  - Visual impairment [Unknown]
  - Hospitalisation [Unknown]
  - Pain [Recovered/Resolved]
  - Rash [Recovered/Resolved]
  - Increased tendency to bruise [Unknown]
  - Pyrexia [Unknown]
  - Sinusitis [Recovering/Resolving]

NARRATIVE: CASE EVENT DATE: 2018
